FAERS Safety Report 9981137 (Version 2)
Quarter: 2014Q3

REPORT INFORMATION
  Report Type: Report from Study
  Country: US (occurrence: US)
  Receive Date: 20140307
  Receipt Date: 20140926
  Transmission Date: 20150326
  Serious: Yes (Hospitalization, Other)
  Sender: FDA-Public Use
  Company Number: US-ALEXION PHARMACEUTICALS INC.-A201305162

PATIENT

DRUGS (1)
  1. SOLIRIS [Suspect]
     Active Substance: ECULIZUMAB
     Indication: PAROXYSMAL NOCTURNAL HAEMOGLOBINURIA
     Dosage: UNK
     Route: 042

REACTIONS (8)
  - Poor venous access [Unknown]
  - Headache [Unknown]
  - Abdominal pain [Unknown]
  - Coagulopathy [Unknown]
  - Budd-Chiari syndrome [Unknown]
  - Haematoma [Unknown]
  - Arterial injury [Unknown]
  - Portal shunt [Unknown]
